FAERS Safety Report 25827852 (Version 1)
Quarter: 2025Q3

REPORT INFORMATION
  Report Type: Spontaneous
  Country: US (occurrence: US)
  Receive Date: 20250921
  Receipt Date: 20250921
  Transmission Date: 20251021
  Serious: Yes (Life-Threatening, Hospitalization, Other)
  Sender: UNICHEM
  Company Number: US-UNICHEM LABORATORIES LIMITED-UNI-2025-US-003254

PATIENT

DRUGS (1)
  1. BACLOFEN [Suspect]
     Active Substance: BACLOFEN
     Indication: Wound dehiscence
     Route: 037

REACTIONS (8)
  - Cardiac arrest [Recovering/Resolving]
  - Gaze palsy [Recovering/Resolving]
  - Unresponsive to stimuli [Recovering/Resolving]
  - Supraventricular tachycardia [Recovering/Resolving]
  - Musculoskeletal stiffness [Recovering/Resolving]
  - Hypotension [Recovering/Resolving]
  - Mental status changes [Recovering/Resolving]
  - Withdrawal syndrome [Unknown]
